FAERS Safety Report 9802572 (Version 2)
Quarter: 2014Q1

REPORT INFORMATION
  Report Type: Spontaneous
  Country: US (occurrence: US)
  Receive Date: 20140108
  Receipt Date: 20140123
  Transmission Date: 20141002
  Serious: Yes (Other)
  Sender: FDA-Public Use
  Company Number: US-AMGEN-USASP2014000317

PATIENT
  Age: 58 Year
  Sex: Female

DRUGS (3)
  1. ENBREL [Suspect]
     Indication: RHEUMATOID ARTHRITIS
     Dosage: 50 MG, QWK
     Route: 065
     Dates: start: 20130625
  2. METHOTREXATE [Concomitant]
     Dosage: 2.5 MG, QWK, 10 TABLETS
     Route: 048
     Dates: start: 20130306
  3. NAPROSYN                           /00256201/ [Concomitant]
     Dosage: UNK

REACTIONS (10)
  - Loss of consciousness [Unknown]
  - Coronary artery occlusion [Unknown]
  - Arthralgia [Not Recovered/Not Resolved]
  - Pain in extremity [Not Recovered/Not Resolved]
  - Skin plaque [Not Recovered/Not Resolved]
  - Rash [Not Recovered/Not Resolved]
  - Liver function test abnormal [Recovered/Resolved]
  - Skin haemorrhage [Not Recovered/Not Resolved]
  - Transaminases increased [Unknown]
  - Psoriasis [Not Recovered/Not Resolved]
